FAERS Safety Report 5883325-2 (Version None)
Quarter: 2008Q3

REPORT INFORMATION
  Report Type: 
  Country: None (occurrence: None)
  Receive Date: 20080910
  Receipt Date: 20080828
  Transmission Date: 20090109
  Serious: Yes (Other)
  Sender: FDA-Public Use
  Company Number: 2008-03196

PATIENT
  Age: 57 Year
  Sex: Male

DRUGS (7)
  1. VELCADE [Suspect]
     Indication: MULTIPLE MYELOMA
     Dosage: 2.27 MG, INTRAVENOUS
     Route: 042
  2. FENTANYL-100 [Concomitant]
  3. PROCHLORPERAZINE MALEATE [Concomitant]
  4. CLARITHROMYCIN [Concomitant]
  5. FAMCICLOVIR (FAMCICLOVIR) [Concomitant]
  6. RANITIDINE [Concomitant]
  7. ALLOPURINOL [Concomitant]

REACTIONS (1)
  - DELIRIUM [None]
